FAERS Safety Report 10225015 (Version 1)
Quarter: 2014Q2

REPORT INFORMATION
  Report Type: Spontaneous
  Country: CH (occurrence: CH)
  Receive Date: 20140609
  Receipt Date: 20140609
  Transmission Date: 20141212
  Serious: Yes (Other)
  Sender: FDA-Public Use
  Company Number: CH-ELI_LILLY_AND_COMPANY-CH201405010337

PATIENT
  Age: 35 Year
  Sex: Female

DRUGS (4)
  1. FLUCTINE [Suspect]
     Indication: DEPRESSION
     Dosage: 40 MG, QD
     Route: 048
     Dates: start: 2013
  2. FLUCTINE [Suspect]
     Indication: DEPRESSION
     Dosage: 40 MG, QD
     Route: 048
     Dates: start: 2013
  3. LAMICTAL [Suspect]
     Indication: DEPRESSION
     Dosage: UNK
     Route: 054
     Dates: start: 2013, end: 20140204
  4. LAMICTAL [Suspect]
     Indication: DEPRESSION
     Dosage: UNK
     Route: 054
     Dates: start: 2013, end: 20140204

REACTIONS (1)
  - Exposure during pregnancy [Unknown]
